FAERS Safety Report 4493641-7 (Version None)
Quarter: 2004Q4

REPORT INFORMATION
  Report Type: 
  Country: None (occurrence: None)
  Receive Date: 20041102
  Receipt Date: 20041026
  Transmission Date: 20050328
  Serious: Yes (Other)
  Sender: FDA-Public Use
  Company Number: 209960

PATIENT
  Age: 54 Year
  Sex: Female

DRUGS (1)
  1. XOLAIR [Suspect]
     Indication: ASTHMA
     Dosage: 1.8 ML, 1/MONTH, SUBCUTANEOUS
     Route: 058
     Dates: start: 20040602, end: 20041011

REACTIONS (3)
  - ANAPHYLACTIC REACTION [None]
  - ORAL PAIN [None]
  - SINUSITIS [None]
